FAERS Safety Report 16668402 (Version 1)
Quarter: 2019Q3

REPORT INFORMATION
  Report Type: Spontaneous
  Country: US (occurrence: US)
  Receive Date: 20190620
  Receipt Date: 20190620
  Transmission Date: 20191004
  Serious: No
  Sender: FDA-Public Use
  Company Number: None

PATIENT

DRUGS (2)
  1. IBUPROFEN 800MG [Suspect]
     Active Substance: IBUPROFEN
  2. SEVELAMER 800 MG [Suspect]
     Active Substance: SEVELAMER

REACTIONS (1)
  - Product appearance confusion [None]
